FAERS Safety Report 5120872-5 (Version None)
Quarter: 2006Q4

REPORT INFORMATION
  Report Type: 
  Country: None (occurrence: None)
  Receive Date: 20061005
  Receipt Date: 20060323
  Transmission Date: 20070319
  Serious: No
  Sender: FDA-Public Use
  Company Number: US-BRISTOL-MYERS SQUIBB COMPANY-13325378

PATIENT
  Age: 63 Year
  Weight: 55 kg

DRUGS (2)
  1. CORGARD [Suspect]
     Indication: HYPERTENSION
     Dosage: 20 MG TWICE PER DAY AND 10 MG ONCE PER DAY
  2. LOMOTIL [Concomitant]

REACTIONS (2)
  - EYE SWELLING [None]
  - HEADACHE [None]
